FAERS Safety Report 20690930 (Version 1)
Quarter: 2022Q2

REPORT INFORMATION
  Report Type: Spontaneous
  Country: US (occurrence: US)
  Receive Date: 20220408
  Receipt Date: 20220408
  Transmission Date: 20220721
  Serious: Yes (Other)
  Sender: FDA-Public Use
  Company Number: US-AMGEN-USASP2022056487

PATIENT
  Age: 48 Year
  Sex: Male
  Weight: 71.7 kg

DRUGS (2)
  1. MVASI [Suspect]
     Active Substance: BEVACIZUMAB-AWWB
     Indication: Non-small cell lung cancer
     Dosage: 1100 MILLIGRAM
     Route: 065
     Dates: start: 20210909
  2. PEMETREXED [Concomitant]
     Active Substance: PEMETREXED
     Dosage: UNK

REACTIONS (1)
  - Respiratory distress [Not Recovered/Not Resolved]
